FAERS Safety Report 7960059-1 (Version None)
Quarter: 2011Q4

REPORT INFORMATION
  Report Type: 
  Country: None (occurrence: None)
  Receive Date: 20111206
  Receipt Date: 20111124
  Transmission Date: 20120403
  Serious: Yes (Other)
  Sender: FDA-Public Use
  Company Number: PHHY2011DE103788

PATIENT
  Sex: Female

DRUGS (2)
  1. VALPROATE SODIUM [Concomitant]
     Dosage: UNK UKN, UNK
  2. CLOZAPINE [Suspect]
     Dosage: 450 MG / DAY

REACTIONS (1)
  - ANTIPSYCHOTIC DRUG LEVEL ABOVE THERAPEUTIC [None]
